FAERS Safety Report 10575792 (Version 2)
Quarter: 2014Q4

REPORT INFORMATION
  Report Type: Spontaneous
  Country: JP (occurrence: JP)
  Receive Date: 20141111
  Receipt Date: 20141111
  Transmission Date: 20150529
  Serious: Yes (Death)
  Sender: FDA-Public Use
  Company Number: JP-MALLINCKRODT-T201403323

PATIENT
  Age: 56 Year
  Sex: Male
  Weight: 50 kg

DRUGS (16)
  1. CELECOX [Concomitant]
     Active Substance: CELECOXIB
     Dosage: 400 MG
     Route: 048
     Dates: end: 20140906
  2. METHADONE [Suspect]
     Active Substance: METHADONE HYDROCHLORIDE
     Dosage: 20 MG (60 MG DAILY DOSE)
     Route: 048
     Dates: start: 20140716, end: 20140724
  3. METHADONE [Suspect]
     Active Substance: METHADONE HYDROCHLORIDE
     Dosage: 30 MG (90 MG DAILY DOSE)
     Route: 048
     Dates: start: 20140725, end: 20140906
  4. OXINORM [Suspect]
     Active Substance: OXYCODONE HYDROCHLORIDE
     Indication: ANALGESIC THERAPY
     Dosage: 15-20 MG (60-140 MG DAILY DOSE)
     Route: 048
     Dates: start: 20140701
  5. METHADONE [Suspect]
     Active Substance: METHADONE HYDROCHLORIDE
     Indication: CANCER PAIN
     Dosage: 10 MG (30 MG DAILY DOSE)
     Route: 048
     Dates: start: 20140702, end: 20140708
  6. URSO [Concomitant]
     Active Substance: URSODIOL
     Dosage: 600 MG
     Route: 048
     Dates: end: 20140906
  7. PRIMPERAN [Concomitant]
     Active Substance: METOCLOPRAMIDE HYDROCHLORIDE
     Dosage: 15 MG
     Route: 048
     Dates: end: 20140906
  8. NAUZELIN [Concomitant]
     Active Substance: DOMPERIDONE
     Dosage: 30 MG
     Route: 048
     Dates: start: 20140701, end: 20140906
  9. LAGNOS [Concomitant]
     Dosage: 48 G
     Route: 048
     Dates: start: 20140715, end: 20140906
  10. MORPHINE [Concomitant]
     Active Substance: MORPHINE
     Dosage: 40 MG, UNK
     Route: 058
     Dates: start: 20140904, end: 20140909
  11. MYSLEE [Concomitant]
     Active Substance: ZOLPIDEM TARTRATE
     Dosage: 10 MG
     Route: 048
     Dates: end: 20140906
  12. MAGMITT [Concomitant]
     Active Substance: MAGNESIUM OXIDE
     Dosage: 1980 MG
     Route: 048
     Dates: end: 20140906
  13. SENNA [Concomitant]
     Active Substance: SENNA LEAF\SENNOSIDES\SENNOSIDES A AND B
     Dosage: 1000 MG
     Route: 048
     Dates: start: 20140707, end: 20140906
  14. LAFUTIDINE [Concomitant]
     Active Substance: LAFUTIDINE
     Dosage: 20 MG
     Route: 048
     Dates: end: 20140906
  15. METHADONE [Suspect]
     Active Substance: METHADONE HYDROCHLORIDE
     Dosage: 15 MG (45 MG DAILY DOSE)
     Route: 048
     Dates: start: 20140709, end: 20140715
  16. OXINORM [Concomitant]
     Active Substance: OXYCODONE HYDROCHLORIDE
     Dosage: 15-20 MG, PRN
     Route: 048
     Dates: start: 20140701

REACTIONS (4)
  - Hepatocellular carcinoma [Fatal]
  - Dehydration [Recovered/Resolved]
  - Delirium [Not Recovered/Not Resolved]
  - Constipation [Recovered/Resolved]

NARRATIVE: CASE EVENT DATE: 20140707
